FAERS Safety Report 11403690 (Version 1)
Quarter: 2015Q3

REPORT INFORMATION
  Report Type: Spontaneous
  Country: JP (occurrence: JP)
  Receive Date: 20150821
  Receipt Date: 20150821
  Transmission Date: 20151125
  Serious: Yes (Other)
  Sender: FDA-Public Use
  Company Number: JP-TEVA-2015-JP-001500J

PATIENT
  Age: 68 Year
  Sex: Male

DRUGS (1)
  1. LANSOPRAZOLE OD TABLET 30MG ^TEVA^ [Suspect]
     Active Substance: LANSOPRAZOLE
     Indication: PRODUCT USED FOR UNKNOWN INDICATION
     Route: 048

REACTIONS (3)
  - Enterocolitis [Unknown]
  - Photopsia [Unknown]
  - Musculoskeletal chest pain [Unknown]
